FAERS Safety Report 4289159-7 (Version None)
Quarter: 2004Q1

REPORT INFORMATION
  Report Type: 
  Country: None (occurrence: None)
  Receive Date: 20040206
  Receipt Date: 20040121
  Transmission Date: 20041129
  Serious: Yes (Hospitalization)
  Sender: FDA-Public Use
  Company Number: DSA_23918_2004

PATIENT
  Age: 80 Year
  Sex: Female

DRUGS (11)
  1. ENALAPRIL MALEATE [Suspect]
     Indication: HYPERTENSION
     Dosage: 15 MG Q DAY PO
     Route: 048
     Dates: start: 20030723, end: 20030912
  2. ISOSORBIDE DINITRATE [Suspect]
     Indication: CORONARY ARTERY DISEASE
     Dosage: 120 MG Q DAY PO
     Route: 048
     Dates: start: 20020101
  3. XIPAMIDE [Suspect]
     Indication: HYPERTENSION
     Dosage: 40 MG Q DAY PO
     Route: 048
     Dates: start: 20020101
  4. MOLSIDOMINE [Suspect]
     Indication: ANGINA PECTORIS
     Dosage: 8 MG BID PO
     Route: 048
     Dates: start: 20000101
  5. CARVEDILOL [Suspect]
     Indication: HYPERTENSION
     Dosage: 6.25 MG Q DAY PO
     Route: 048
     Dates: start: 20020101
  6. TORSEMIDE [Suspect]
     Indication: HYPERTENSION
     Dosage: 10 MG BID PO
     Route: 048
     Dates: start: 20020101
  7. ALLOPURINOL [Concomitant]
  8. ASPIRIN [Concomitant]
  9. ATORVASTATIN CALCIUM [Concomitant]
  10. INSULIN [Concomitant]
  11. LEVOTHYROXINE SODIUM [Concomitant]

REACTIONS (6)
  - ASTHENIA [None]
  - BLOOD CREATININE INCREASED [None]
  - BLOOD PRESSURE SYSTOLIC INCREASED [None]
  - DIZZINESS [None]
  - DRUG INTERACTION [None]
  - HYPOTENSION [None]
